FAERS Safety Report 21839831 (Version 1)
Quarter: 2023Q1

REPORT INFORMATION
  Report Type: Report from Study
  Country: BE (occurrence: BE)
  Receive Date: 20230110
  Receipt Date: 20230110
  Transmission Date: 20230418
  Serious: Yes (Death, Hospitalization, Other)
  Sender: FDA-Public Use
  Company Number: BE-ABBVIE-4258773

PATIENT
  Sex: Male
  Weight: 60 kg

DRUGS (7)
  1. CARBIDOPA\LEVODOPA [Suspect]
     Active Substance: CARBIDOPA\LEVODOPA
     Indication: Parkinson^s disease
     Dosage: CD 1.9 ML/H, ED 1.2 ML, DURING 16 HRS
     Route: 050
     Dates: start: 20220609, end: 20221231
  2. CARBIDOPA\LEVODOPA [Suspect]
     Active Substance: CARBIDOPA\LEVODOPA
     Dosage: CD 1.7 ML/H, ED 1.2 ML, DURING 16 HRS
     Route: 050
     Dates: start: 20220118, end: 20220609
  3. CARBIDOPA\LEVODOPA [Suspect]
     Active Substance: CARBIDOPA\LEVODOPA
     Route: 050
     Dates: start: 20121210
  4. CARBIDOPA\LEVODOPA [Suspect]
     Active Substance: CARBIDOPA\LEVODOPA
     Dosage: CD 1.6 ML/H, ED 1.2 ML, DURING 16 HRS
     Route: 050
     Dates: start: 20220106, end: 20220118
  5. BENSERAZIDE\LEVODOPA [Concomitant]
     Active Substance: BENSERAZIDE\LEVODOPA
     Indication: Product used for unknown indication
     Dosage: 4 X 1 PROLOPA DISP., FORM STRENGTH: 125
  6. PRAMIPEXOLE [Concomitant]
     Active Substance: PRAMIPEXOLE
     Indication: Product used for unknown indication
     Dosage: 0.7 UNKNOWN, 4 X 0.5 UNKNOWN
  7. STALEVO [Concomitant]
     Active Substance: CARBIDOPA\ENTACAPONE\LEVODOPA
     Indication: Product used for unknown indication
     Dosage: 4 X 1 FORM STRENGTH: 100

REACTIONS (6)
  - Death [Fatal]
  - Diarrhoea [Unknown]
  - Malaise [Unknown]
  - Pneumonia [Unknown]
  - Volvulus [Unknown]
  - Quality of life decreased [Unknown]
